FAERS Safety Report 7978382-3 (Version None)
Quarter: 2011Q4

REPORT INFORMATION
  Report Type: 
  Country: None (occurrence: None)
  Receive Date: 20111214
  Receipt Date: 20111206
  Transmission Date: 20120403
  Serious: Yes (Other)
  Sender: FDA-Public Use
  Company Number: US-RB-030773-11

PATIENT
  Age: 48 Year
  Sex: Male

DRUGS (1)
  1. DELSYM [Suspect]
     Indication: PRODUCT USED FOR UNKNOWN INDICATION
     Dosage: ONLY TOOK ONE DOSE
     Route: 048
     Dates: start: 20111128

REACTIONS (5)
  - APHONIA [None]
  - GAIT DISTURBANCE [None]
  - FATIGUE [None]
  - STUPOR [None]
  - HEART RATE IRREGULAR [None]
